FAERS Safety Report 12583603 (Version 1)
Quarter: 2016Q3

REPORT INFORMATION
  Report Type: Spontaneous
  Country: CA (occurrence: CA)
  Receive Date: 20160722
  Receipt Date: 20160722
  Transmission Date: 20161109
  Serious: Yes (Death, Hospitalization)
  Sender: FDA-Public Use
  Company Number: CA-JNJFOC-20160717491

PATIENT

DRUGS (24)
  1. RISPERIDONE. [Suspect]
     Active Substance: RISPERIDONE
     Indication: BIPOLAR DISORDER
     Dosage: LOW DOSE: {26 MG/DAY, MEDIIUM DOSE: 26-74 MG/DAY; HIGH DOSE: }74 MG/DAY
     Route: 065
  2. HALOPERIDOL. [Suspect]
     Active Substance: HALOPERIDOL
     Indication: DEMENTIA
     Dosage: LOW DOSE: {26 MG/DAY??MEDIAN DOSE: 26-74 MG/DAY??HIGH DOSE: }74 MG/DAY
     Route: 065
  3. ARIPIPRAZOLE. [Suspect]
     Active Substance: ARIPIPRAZOLE
     Indication: DEMENTIA
     Dosage: LOW DOSE: {26 MG/DAY??MEDIAN DOSE: 26-74 MG/DAY??HIGH DOSE: }74 MG/DAY
     Route: 065
  4. RISPERIDONE. [Suspect]
     Active Substance: RISPERIDONE
     Indication: DEMENTIA
     Dosage: LOW DOSE: {26 MG/DAY, MEDIIUM DOSE: 26-74 MG/DAY; HIGH DOSE: }74 MG/DAY
     Route: 065
  5. ARIPIPRAZOLE. [Suspect]
     Active Substance: ARIPIPRAZOLE
     Indication: BIPOLAR DISORDER
     Dosage: LOW DOSE: {26 MG/DAY??MEDIAN DOSE: 26-74 MG/DAY??HIGH DOSE: }74 MG/DAY
     Route: 065
  6. LOXAPINE. [Suspect]
     Active Substance: LOXAPINE
     Indication: BIPOLAR DISORDER
     Dosage: LOW DOSE: {26 MG/DAY??MEDIAN DOSE: 26-74 MG/DAY??HIGH DOSE: }74 MG/DAY
     Route: 065
  7. LOXAPINE. [Suspect]
     Active Substance: LOXAPINE
     Indication: SCHIZOPHRENIA
     Dosage: LOW DOSE: {26 MG/DAY??MEDIAN DOSE: 26-74 MG/DAY??HIGH DOSE: }74 MG/DAY
     Route: 065
  8. METHOTRIMEPRAZINE [Suspect]
     Active Substance: LEVOMEPROMAZINE
     Indication: BIPOLAR DISORDER
     Dosage: LOW DOSE: {26 MG/DAY??MEDIAN DOSE: 26-74 MG/DAY??HIGH DOSE: }74 MG/DAY
     Route: 065
  9. METHOTRIMEPRAZINE [Suspect]
     Active Substance: LEVOMEPROMAZINE
     Indication: SCHIZOPHRENIA
     Dosage: LOW DOSE: {26 MG/DAY??MEDIAN DOSE: 26-74 MG/DAY??HIGH DOSE: }74 MG/DAY
     Route: 065
  10. OLANZAPINE. [Suspect]
     Active Substance: OLANZAPINE
     Indication: BIPOLAR DISORDER
     Dosage: LOW DOSE: {26 MG/DAY??MEDIAN DOSE: 26-74 MG/DAY??HIGH DOSE: }74 MG/DAY
     Route: 065
  11. QUETIAPINE. [Suspect]
     Active Substance: QUETIAPINE
     Indication: DEMENTIA
     Route: 065
  12. HALOPERIDOL. [Suspect]
     Active Substance: HALOPERIDOL
     Indication: SCHIZOPHRENIA
     Dosage: LOW DOSE: {26 MG/DAY??MEDIAN DOSE: 26-74 MG/DAY??HIGH DOSE: }74 MG/DAY
     Route: 065
  13. OLANZAPINE. [Suspect]
     Active Substance: OLANZAPINE
     Indication: SCHIZOPHRENIA
     Dosage: LOW DOSE: {26 MG/DAY??MEDIAN DOSE: 26-74 MG/DAY??HIGH DOSE: }74 MG/DAY
     Route: 065
  14. METHOTRIMEPRAZINE [Suspect]
     Active Substance: LEVOMEPROMAZINE
     Indication: DEMENTIA
     Dosage: LOW DOSE: {26 MG/DAY??MEDIAN DOSE: 26-74 MG/DAY??HIGH DOSE: }74 MG/DAY
     Route: 065
  15. OLANZAPINE. [Suspect]
     Active Substance: OLANZAPINE
     Indication: DEMENTIA
     Dosage: LOW DOSE: {26 MG/DAY??MEDIAN DOSE: 26-74 MG/DAY??HIGH DOSE: }74 MG/DAY
     Route: 065
  16. QUETIAPINE. [Suspect]
     Active Substance: QUETIAPINE
     Indication: SCHIZOPHRENIA
     Route: 065
  17. ARIPIPRAZOLE. [Suspect]
     Active Substance: ARIPIPRAZOLE
     Indication: SCHIZOPHRENIA
     Dosage: LOW DOSE: {26 MG/DAY??MEDIAN DOSE: 26-74 MG/DAY??HIGH DOSE: }74 MG/DAY
     Route: 065
  18. LOXAPINE. [Suspect]
     Active Substance: LOXAPINE
     Indication: DEMENTIA
     Dosage: LOW DOSE: {26 MG/DAY??MEDIAN DOSE: 26-74 MG/DAY??HIGH DOSE: }74 MG/DAY
     Route: 065
  19. CHLORPROMAZINE. [Suspect]
     Active Substance: CHLORPROMAZINE
     Indication: BIPOLAR DISORDER
     Dosage: LOW DOSE: {26 MG/DAY??MEDIAN DOSE: 26-74 MG/DAY??HIGH DOSE: }74 MG/DAY
     Route: 065
  20. CHLORPROMAZINE. [Suspect]
     Active Substance: CHLORPROMAZINE
     Indication: SCHIZOPHRENIA
     Dosage: LOW DOSE: {26 MG/DAY??MEDIAN DOSE: 26-74 MG/DAY??HIGH DOSE: }74 MG/DAY
     Route: 065
  21. CHLORPROMAZINE. [Suspect]
     Active Substance: CHLORPROMAZINE
     Indication: DEMENTIA
     Dosage: LOW DOSE: {26 MG/DAY??MEDIAN DOSE: 26-74 MG/DAY??HIGH DOSE: }74 MG/DAY
     Route: 065
  22. QUETIAPINE. [Suspect]
     Active Substance: QUETIAPINE
     Indication: BIPOLAR DISORDER
     Route: 065
  23. RISPERIDONE. [Suspect]
     Active Substance: RISPERIDONE
     Indication: SCHIZOPHRENIA
     Dosage: LOW DOSE: {26 MG/DAY, MEDIIUM DOSE: 26-74 MG/DAY; HIGH DOSE: }74 MG/DAY
     Route: 065
  24. HALOPERIDOL. [Suspect]
     Active Substance: HALOPERIDOL
     Indication: BIPOLAR DISORDER
     Dosage: LOW DOSE: {26 MG/DAY??MEDIAN DOSE: 26-74 MG/DAY??HIGH DOSE: }74 MG/DAY
     Route: 065

REACTIONS (6)
  - Hospitalisation [Unknown]
  - Death [Fatal]
  - Off label use [Fatal]
  - Adverse drug reaction [Unknown]
  - Incorrect drug administration duration [Unknown]
  - Prescribed overdose [Fatal]
